FAERS Safety Report 9637746 (Version 1)
Quarter: 2013Q4

REPORT INFORMATION
  Report Type: Spontaneous
  Country: FR (occurrence: None)
  Receive Date: 20131018
  Receipt Date: 20131018
  Transmission Date: 20140711
  Serious: Yes (Hospitalization)
  Sender: FDA-Public Use
  Company Number: 1914080

PATIENT
  Age: 61 Year
  Sex: Female

DRUGS (2)
  1. CARBOPLATIN [Suspect]
     Indication: OVARIAN CANCER
     Route: 042
     Dates: start: 20090522, end: 20090522
  2. PACLITAXEL EBEWE [Concomitant]

REACTIONS (7)
  - Hyperhidrosis [None]
  - Hypotension [None]
  - Vomiting [None]
  - Abdominal pain [None]
  - Asthenia [None]
  - Infusion related reaction [None]
  - Chills [None]
